FAERS Safety Report 20405691 (Version 1)
Quarter: 2022Q1

REPORT INFORMATION
  Report Type: Spontaneous
  Country: US (occurrence: US)
  Receive Date: 20220131
  Receipt Date: 20220131
  Transmission Date: 20220423
  Serious: No
  Sender: FDA-Public Use
  Company Number: US-PFIZER INC-202101507067

PATIENT
  Age: 80 Year
  Sex: Female
  Weight: 84.803 kg

DRUGS (2)
  1. IBRANCE [Suspect]
     Active Substance: PALBOCICLIB
     Dosage: CYCLIC (21 DAYS ON 1 WEEK OFF)
  2. LETROZOLE [Suspect]
     Active Substance: LETROZOLE
     Dosage: UNK, DAILY

REACTIONS (7)
  - Balance disorder [Unknown]
  - Dizziness [Unknown]
  - Dry skin [Unknown]
  - Fatigue [Unknown]
  - Gait disturbance [Unknown]
  - Pain [Unknown]
  - Rash [Unknown]
